FAERS Safety Report 19358381 (Version 6)
Quarter: 2021Q4

REPORT INFORMATION
  Report Type: Spontaneous
  Country: US (occurrence: US)
  Receive Date: 20210531
  Receipt Date: 20211109
  Transmission Date: 20220303
  Serious: No
  Sender: FDA-Public Use
  Company Number: US-JNJFOC-20210548660

PATIENT
  Age: 52 Year
  Sex: Male
  Weight: 108.8 kg

DRUGS (6)
  1. SPRAVATO [Suspect]
     Active Substance: ESKETAMINE
     Indication: Depression
     Dates: start: 20210412
  2. SPRAVATO [Suspect]
     Active Substance: ESKETAMINE
     Dosage: LAST TREATMENT : 21-SEP-2021
     Dates: start: 20210831, end: 20210921
  3. TRINTELLIX [Concomitant]
     Active Substance: VORTIOXETINE HYDROBROMIDE
     Indication: Depression
     Dosage: DAILY
  4. REXULTI [Concomitant]
     Active Substance: BREXPIPRAZOLE
     Indication: Depression
     Dosage: DAILY
     Route: 065
  5. REXULTI [Concomitant]
     Active Substance: BREXPIPRAZOLE
     Dosage: DAILY
     Route: 065
  6. TOPIRAMATE [Concomitant]
     Active Substance: TOPIRAMATE
     Indication: Depression
     Dosage: DAILY
     Route: 065

REACTIONS (3)
  - Device malfunction [Unknown]
  - Underdose [Unknown]
  - Sedation [Unknown]

NARRATIVE: CASE EVENT DATE: 20210525
